FAERS Safety Report 25998684 (Version 1)
Quarter: 2025Q4

REPORT INFORMATION
  Report Type: Spontaneous
  Country: CA (occurrence: CA)
  Receive Date: 20251105
  Receipt Date: 20251105
  Transmission Date: 20260117
  Serious: Yes (Other)
  Sender: ALEXION PHARMACEUTICALS
  Company Number: CA-HALEON-2270545

PATIENT
  Age: 41 Year
  Sex: Female

DRUGS (28)
  1. NEXIUM 24HR [Suspect]
     Active Substance: ESOMEPRAZOLE MAGNESIUM
     Dosage: ROA: UNKNOWN
  2. ACETAMINOPHEN [Concomitant]
     Active Substance: ACETAMINOPHEN
     Route: 065
  3. AMOXICILLIN TRIHYDRATE [Concomitant]
     Active Substance: AMOXICILLIN
     Dosage: AT A DOSE OF 2 DOSAGE FORM (DURATION: 1 DAY)
     Route: 065
  4. BOTULINUM TOXIN NOS [Concomitant]
     Active Substance: BOTULINUM TOXIN NOS
     Dosage: POWDER FOR SOLUTION FOR INFUSION (ROUTE: UNKNOWN) (DURATION: 63 DAYS), AT (ROUTE: UNKNOWN) (DURATION: 61 DAYS), AT (ROUTE: UNKNOWN) (DURATION: 181 DAYS), AT (ROUTE: UNKNOWN) (DURATION: 59 DAYS), BOTULINUM TOXIN TYPE A (BOTULINUM TOXIN TYPE A) POWDER FOR SOLUTION (ROUTE: UNKNOWN) (DURATION: 62 DAYS)
     Route: 065
  5. CLARITHROMYCIN [Concomitant]
     Active Substance: CLARITHROMYCIN
     Dosage: AT A DOSE OF 1 DOSAGE FORM EVERY 12 HOURS (DURATION: 1 DAY)
     Route: 065
  6. CODEINE [Concomitant]
     Active Substance: CODEINE
     Dosage: (ROUTE: UNKNOWN) (DURATION: 1 DAY)
     Route: 065
  7. LANSOPRAZOLE [Concomitant]
     Active Substance: LANSOPRAZOLE
     Route: 065
  8. SUMATRIPTAN SUCCINATE [Concomitant]
     Active Substance: SUMATRIPTAN SUCCINATE
     Route: 065
  9. TRAMADOL HYDROCHLORIDE [Concomitant]
     Active Substance: TRAMADOL HYDROCHLORIDE
     Route: 065
  10. TRIMETHOPRIM [Concomitant]
     Active Substance: TRIMETHOPRIM
     Route: 065
  11. VENLAFAXINE HYDROCHLORIDE [Concomitant]
     Active Substance: VENLAFAXINE HYDROCHLORIDE
     Route: 065
  12. PREDNISONE [Concomitant]
     Active Substance: PREDNISONE
     Dosage: AT A DOSE OF 2 DOSAGE FORM 1 EVERY 1 DAY
     Route: 065
  13. ZOLMITRIPTAN [Concomitant]
     Active Substance: ZOLMITRIPTAN
     Route: 065
  14. RIZATRIPTAN BENZOATE [Concomitant]
     Active Substance: RIZATRIPTAN BENZOATE
     Dosage: 1 EVERY 1 DAY (ROUTE: UNKNOWN) (DURATION: 1 DAY)
     Route: 065
  15. ALBUTEROL SULFATE [Concomitant]
     Active Substance: ALBUTEROL SULFATE
     Dosage: DOSE OF 4 DOSAGE FORM 1 EVERY 1 DAY
     Route: 065
  16. AZITHROMYCIN [Concomitant]
     Active Substance: AZITHROMYCIN
     Route: 065
  17. DEXAMETHASONE [Concomitant]
     Active Substance: DEXAMETHASONE
     Dosage: AT A DOSE OF 1 DOSAGE FORM (ROUTE: UNKNOWN)
     Route: 065
  18. DULOXETINE [Concomitant]
     Active Substance: DULOXETINE
     Route: 065
  19. FLUCONAZOLE [Concomitant]
     Active Substance: FLUCONAZOLE
     Route: 065
  20. LISINOPRIL [Concomitant]
     Active Substance: LISINOPRIL
     Route: 065
  21. SCOPOLAMINE HYDROBROMIDE [Concomitant]
     Active Substance: SCOPOLAMINE HYDROBROMIDE
     Route: 065
  22. SERTRALINE HYDROCHLORIDE [Concomitant]
     Active Substance: SERTRALINE HYDROCHLORIDE
     Route: 065
  23. TOPIRAMATE [Concomitant]
     Active Substance: TOPIRAMATE
     Route: 065
  24. CIPROFLOXACIN HYDROCHLORIDE [Concomitant]
     Active Substance: CIPROFLOXACIN HYDROCHLORIDE
     Dosage: AT A DOSE OF 1 DOSAGE FORM (ROUTE: UNKNOWN) (DURATION: 152 DAYS)
     Route: 065
  25. ESCITALOPRAM OXALATE [Concomitant]
     Active Substance: ESCITALOPRAM OXALATE
     Route: 065
  26. HYDROMORPHONE [Concomitant]
     Active Substance: HYDROMORPHONE
     Dosage: AT A DOSE OF 1 DOSAGE FORM EVERY 12 HOURS (DURATION: 158 DAYS), 1 DOSAGE FORM EVERY 12 HOURS (DURATION: 61 DAYS), 1 DOSAGE FORM EVERY 12 HOURS (DURATION: 140 DAYS), 1 DOSAGE FORM EVERY 12 HOURS (DURATION: 4 DAYS), 1 DOSAGE FORM EVERY 12 HOURS (DURATION: 1 DAY), 1 DOSAGE FORM EVERY 12 HOURS (DURATION
     Route: 065
  27. INDOMETHACIN [Concomitant]
     Active Substance: INDOMETHACIN
     Dosage: SUPPOSITORY (ROUTE: RECTAL) (DURATION: 321 DAYS), (ROUTE: RECTAL) (DURATION: 114 DAYS), (ROUTE: RECTAL) (DURATION: 147 DAYS), 1 EVERY 12 HOURS (ROUTE: RECTAL) (DURATION:52 DAYS), 1 EVERY 12 HOURS (ROUTE: RECTAL) (DURATION: 143 DAYS), 1 EVERY 12 HOURS (ROUTE: RECTAL) (DURATION: 63 DAYS), 1 EVERY 12 H
  28. MOMETASONE FUROATE [Concomitant]
     Active Substance: MOMETASONE FUROATE
     Dosage: AT A DOSE OF 2 DOSAGE FORM, 1 EVERY 12 HOURS (DURATION: 144 DAYS) AND 2 DOSAGE FORM, 1 EVERY 12 HOURS (DURATION: 147 DAYS), RABEPRAZOLE (RABEPRAZOLE) AT A DOSE OF 1 DOSAGE FORM, 1 EVERY 12 HOURS (ROUTE: UNKNOWN) (DURATION: 6 DAYS), 1 DOSAGE FORM, 1 EVERY 12 HOURS (ROUTE: UNKNOWN) (DURATION: 140 DAYS
     Route: 065

REACTIONS (9)
  - Angioedema [Unknown]
  - Drug intolerance [Unknown]
  - Hypersensitivity [Unknown]
  - Off label use [Unknown]
  - Drug ineffective for unapproved indication [Unknown]
  - Dysphonia [Unknown]
  - Headache [Unknown]
  - Swelling face [Unknown]
  - Swollen tongue [Unknown]
